FAERS Safety Report 12765002 (Version 5)
Quarter: 2016Q4

REPORT INFORMATION
  Report Type: Report from Study
  Country: US (occurrence: US)
  Receive Date: 20160921
  Receipt Date: 20161230
  Transmission Date: 20170207
  Serious: Yes (Life-Threatening)
  Sender: FDA-Public Use
  Company Number: US-ROCHE-1804551

PATIENT
  Sex: Male
  Weight: 99.43 kg

DRUGS (16)
  1. PRAVASTATIN. [Concomitant]
     Active Substance: PRAVASTATIN
     Route: 048
  2. OXYGEN. [Concomitant]
     Active Substance: OXYGEN
     Dosage: 3L WHEN HE IS OUT AND 2L WHEN HE IS IN HOME
     Route: 065
  3. ALBUTEROL SULFATE. [Concomitant]
     Active Substance: ALBUTEROL SULFATE
     Dosage: RESPIRATORY (INHALATION), 2.5MG/3ML, 1 VIAL Q4HOURS PRN
     Route: 065
  4. ALLOPURINOL. [Concomitant]
     Active Substance: ALLOPURINOL
     Route: 048
  5. ESBRIET [Suspect]
     Active Substance: PIRFENIDONE
     Indication: IDIOPATHIC PULMONARY FIBROSIS
     Route: 048
     Dates: start: 20150411
  6. ESBRIET [Suspect]
     Active Substance: PIRFENIDONE
     Route: 048
     Dates: start: 20160229
  7. FUROSEMIDE. [Concomitant]
     Active Substance: FUROSEMIDE
     Route: 048
  8. CULTURELLE [Concomitant]
     Active Substance: LACTOBACILLUS RHAMNOSUS
     Dosage: 10 BILLION CELL CAPSULE TWICE A DAY FOR 14 DAYS
     Route: 065
     Dates: start: 20160902
  9. BABY ASPIRIN [Concomitant]
     Active Substance: ASPIRIN
  10. BISOPROLOL/HYDROCHLOROTHIAZIDE [Concomitant]
     Active Substance: BISOPROLOL FUMARATE\HYDROCHLOROTHIAZIDE
     Dosage: 5/6.25 MG
     Route: 048
  11. SPIRIVA [Concomitant]
     Active Substance: TIOTROPIUM BROMIDE MONOHYDRATE
     Route: 055
  12. BISOPROLOL [Concomitant]
     Active Substance: BISOPROLOL
  13. POTASSIUM CHLORIDE. [Concomitant]
     Active Substance: POTASSIUM CHLORIDE
     Dosage: TABLET ER
     Route: 048
  14. DONEPEZIL. [Concomitant]
     Active Substance: DONEPEZIL
     Route: 048
  15. NAPROSYN [Concomitant]
     Active Substance: NAPROXEN
     Route: 048
  16. VENTOLIN HFA [Concomitant]
     Active Substance: ALBUTEROL SULFATE
     Dosage: 2 PUFFS EVERY 4 TO 6 HOURS AS NEEDED
     Route: 055

REACTIONS (3)
  - Mood swings [Not Recovered/Not Resolved]
  - Dementia [Not Recovered/Not Resolved]
  - Photosensitivity reaction [Unknown]
